FAERS Safety Report 12425020 (Version 11)
Quarter: 2017Q2

REPORT INFORMATION
  Report Type: Spontaneous
  Country: US (occurrence: US)
  Receive Date: 20160601
  Receipt Date: 20170516
  Transmission Date: 20170830
  Serious: Yes (Congenital Anomaly, Other)
  Sender: FDA-Public Use
  Company Number: US-APOTEX-2016AP008703

PATIENT
  Sex: Female

DRUGS (4)
  1. PAXIL [Suspect]
     Active Substance: PAROXETINE HYDROCHLORIDE
     Indication: DEPRESSION
     Dosage: 20 MG, QD
     Route: 064
  2. PAXIL [Suspect]
     Active Substance: PAROXETINE HYDROCHLORIDE
     Indication: BIPOLAR DISORDER
     Dosage: 20 MG, QD
     Route: 064
  3. PAXIL CR [Suspect]
     Active Substance: PAROXETINE HYDROCHLORIDE
     Indication: DEPRESSION
  4. PAXIL [Suspect]
     Active Substance: PAROXETINE HYDROCHLORIDE
     Dosage: 30 MG, QD
     Route: 064

REACTIONS (7)
  - Tourette^s disorder [Unknown]
  - Speech disorder [Unknown]
  - Developmental delay [Unknown]
  - Autism spectrum disorder [Unknown]
  - Attention deficit/hyperactivity disorder [Unknown]
  - Foetal exposure during pregnancy [Unknown]
  - Anxiety disorder [Unknown]
